FAERS Safety Report 7300841-7 (Version None)
Quarter: 2011Q1

REPORT INFORMATION
  Report Type: 
  Country: None (occurrence: None)
  Receive Date: 20110218
  Receipt Date: 20110125
  Transmission Date: 20110831
  Serious: Yes (Death, Other)
  Sender: FDA-Public Use
  Company Number: US-TYCO HEALTHCARE/MALLINCKRODT-T201100185

PATIENT
  Age: 26 Year
  Sex: Male

DRUGS (2)
  1. METHADOSE [Suspect]
     Route: 051
  2. ETHANOL [Suspect]
     Route: 051

REACTIONS (14)
  - PUPIL FIXED [None]
  - CARDIO-RESPIRATORY ARREST [None]
  - BRAIN OEDEMA [None]
  - UNRESPONSIVE TO STIMULI [None]
  - HYPOTENSION [None]
  - HYPOGLYCAEMIA [None]
  - DISSEMINATED INTRAVASCULAR COAGULATION [None]
  - COMPLETED SUICIDE [None]
  - BRAIN DEATH [None]
  - LARGE INTESTINE PERFORATION [None]
  - TACHYCARDIA [None]
  - ANOXIA [None]
  - PULMONARY OEDEMA [None]
  - LIVER INJURY [None]
